FAERS Safety Report 19658909 (Version 3)
Quarter: 2021Q3

REPORT INFORMATION
  Report Type: Report from Study
  Country: US (occurrence: US)
  Receive Date: 20210805
  Receipt Date: 20210917
  Transmission Date: 20211014
  Serious: Yes (Hospitalization)
  Sender: FDA-Public Use
  Company Number: US-INSMED, INC.-2021-08695-US

PATIENT
  Age: 58 Year
  Sex: Female

DRUGS (1)
  1. ARIKAYCE [Suspect]
     Active Substance: AMIKACIN
     Indication: MYCOBACTERIUM AVIUM COMPLEX INFECTION
     Dosage: 590 MILLIGRAM, QD
     Route: 055
     Dates: start: 20210607, end: 202107

REACTIONS (8)
  - Cough [Recovered/Resolved]
  - Productive cough [Recovering/Resolving]
  - Hypercapnia [Unknown]
  - Abdominal distension [Unknown]
  - Increased viscosity of bronchial secretion [Unknown]
  - Adverse drug reaction [Unknown]
  - Sputum increased [Unknown]
  - Dysphonia [Unknown]

NARRATIVE: CASE EVENT DATE: 2021
